FAERS Safety Report 16931084 (Version 2)
Quarter: 2020Q1

REPORT INFORMATION
  Report Type: Spontaneous
  Country: DE (occurrence: DE)
  Receive Date: 20191017
  Receipt Date: 20200122
  Transmission Date: 20200409
  Serious: No
  Sender: FDA-Public Use
  Company Number: DE-TOLMAR, INC.-19DE000506

PATIENT
  Age: 88 Year
  Sex: Male

DRUGS (1)
  1. ELIGARD [Suspect]
     Active Substance: LEUPROLIDE ACETATE
     Indication: PRODUCT USED FOR UNKNOWN INDICATION
     Dosage: 22.5 MILLIGRAM; UNKNOWN
     Route: 065
     Dates: start: 20091117

REACTIONS (4)
  - Device leakage [None]
  - Device defective [None]
  - Intercepted product preparation error [None]
  - Syringe issue [None]

NARRATIVE: CASE EVENT DATE: 201910
